FAERS Safety Report 25440465 (Version 1)
Quarter: 2025Q2

REPORT INFORMATION
  Report Type: Spontaneous
  Country: US (occurrence: US)
  Receive Date: 20250616
  Receipt Date: 20250616
  Transmission Date: 20250717
  Serious: No
  Sender: IPSEN BIOPHARMACEUTICALS, INC.
  Company Number: US-IPSEN Group, Research and Development-2025-13445

PATIENT
  Age: 40 Year
  Sex: Female

DRUGS (1)
  1. BYLVAY [Suspect]
     Active Substance: ODEVIXIBAT
     Indication: Bilirubin excretion disorder
     Route: 048
     Dates: start: 20250214

REACTIONS (1)
  - Nausea [Not Recovered/Not Resolved]
